FAERS Safety Report 10025017 (Version 1)
Quarter: 2014Q1

REPORT INFORMATION
  Report Type: Report from Study
  Country: BR (occurrence: BR)
  Receive Date: 20140320
  Receipt Date: 20140320
  Transmission Date: 20141002
  Serious: Yes (Other)
  Sender: FDA-Public Use
  Company Number: PHHY2014BR030447

PATIENT
  Sex: Female
  Weight: 67 kg

DRUGS (6)
  1. ONBREZ [Suspect]
     Indication: ASTHMA
     Dosage: 150 UG, BID (IN THE MORNING AND AT NIGHT)
     Route: 055
  2. ONBREZ [Suspect]
     Indication: OFF LABEL USE
  3. BAMIFIX [Suspect]
     Indication: HYPERSENSITIVITY
     Dosage: 300 MG, Q12H
     Route: 048
  4. ALENIA                             /01538101/ [Concomitant]
     Indication: ASTHMA
     Dosage: UNK(3 YEARS AGO)
  5. ATROVENT [Concomitant]
     Indication: ASTHMA
     Dosage: 20 MG, UNK
     Route: 055
     Dates: start: 20140201
  6. AZI [Concomitant]
     Indication: HYPERSENSITIVITY
     Dosage: 500 MG, Q12H
     Route: 048
     Dates: start: 20140201, end: 20140202

REACTIONS (11)
  - Gait disturbance [Unknown]
  - Influenza [Unknown]
  - Nasopharyngitis [Unknown]
  - Vein disorder [Unknown]
  - Cataract [Unknown]
  - Dyspnoea [Unknown]
  - Skin discolouration [Unknown]
  - Visual impairment [Unknown]
  - Cardiovascular disorder [Unknown]
  - Local swelling [Unknown]
  - Inappropriate schedule of drug administration [Unknown]
